FAERS Safety Report 9714837 (Version 1)
Quarter: 2013Q4

REPORT INFORMATION
  Report Type: Spontaneous
  Country: US (occurrence: BR)
  Receive Date: 20131126
  Receipt Date: 20131126
  Transmission Date: 20140711
  Serious: Yes (Other)
  Sender: FDA-Public Use
  Company Number: US-ABBVIE-13P-163-1171792-00

PATIENT
  Age: 46 Year
  Sex: Female
  Weight: 72 kg

DRUGS (3)
  1. SYNTHROID [Suspect]
     Indication: HYPOTHYROIDISM
     Dates: start: 2008, end: 201311
  2. SYNTHROID [Suspect]
     Dates: start: 201311
  3. CITRULLINE [Concomitant]
     Indication: PRODUCT USED FOR UNKNOWN INDICATION

REACTIONS (2)
  - Metastasis [Recovered/Resolved]
  - Blood thyroid stimulating hormone increased [Unknown]
